FAERS Safety Report 7264751-6 (Version None)
Quarter: 2011Q1

REPORT INFORMATION
  Report Type: 
  Country: None (occurrence: None)
  Receive Date: 20110131
  Receipt Date: 20110121
  Transmission Date: 20110831
  Serious: No
  Sender: FDA-Public Use
  Company Number: US-US-EMD SERONO, INC.-7034510

PATIENT
  Sex: Female
  Weight: 110 kg

DRUGS (4)
  1. REBIF [Suspect]
     Indication: MULTIPLE SCLEROSIS
     Route: 058
     Dates: start: 20100823
  2. OMEPRAZOLE [Concomitant]
     Indication: GASTROOESOPHAGEAL REFLUX DISEASE
     Dates: start: 20100302
  3. ATENOLOL [Concomitant]
     Indication: HYPERTENSION
     Dates: start: 20091014
  4. HYDROXYZINE [Concomitant]
     Indication: RASH
     Dates: start: 20100622, end: 20100922

REACTIONS (4)
  - HAEMORRHOIDS [None]
  - LABORATORY TEST ABNORMAL [None]
  - NASAL DRYNESS [None]
  - HYPERSENSITIVITY [None]
